FAERS Safety Report 19315007 (Version 1)
Quarter: 2021Q2

REPORT INFORMATION
  Report Type: Report from Study
  Country: IT (occurrence: IT)
  Receive Date: 20210527
  Receipt Date: 20210527
  Transmission Date: 20210717
  Serious: Yes (Hospitalization, Other)
  Sender: FDA-Public Use
  Company Number: IT-GLAXOSMITHKLINE-IT2021112704

PATIENT
  Age: 6 Month
  Sex: Female

DRUGS (1)
  1. MENINGOCOCCAL B RECOM VACCINE + ALOH + OMV [Suspect]
     Active Substance: MENINGOCOCCAL GROUP B VACCINE
     Indication: PROPHYLAXIS
     Route: 030
     Dates: start: 20190413

REACTIONS (6)
  - Somnolence [Recovered/Resolved]
  - Pyrexia [Recovered/Resolved]
  - Cyanosis [Recovered/Resolved]
  - Epilepsy [Recovered/Resolved]
  - Crying [Recovered/Resolved]
  - Hypertonia [Recovered/Resolved]

NARRATIVE: CASE EVENT DATE: 20190413
